FAERS Safety Report 18578365 (Version 1)
Quarter: 2020Q4

REPORT INFORMATION
  Report Type: Spontaneous
  Country: US (occurrence: US)
  Receive Date: 20201202
  Receipt Date: 20201202
  Transmission Date: 20210114
  Serious: Yes (Hospitalization)
  Sender: FDA-Public Use
  Company Number: None

PATIENT
  Age: 73 Year
  Sex: Male

DRUGS (1)
  1. LEVOFLOXACIN (LEVOFLOXACIN 750MG TAB) [Suspect]
     Active Substance: LEVOFLOXACIN
     Indication: PSEUDOMONAS INFECTION
     Route: 048
     Dates: start: 20201109, end: 20201110

REACTIONS (6)
  - Agitation [None]
  - Delirium [None]
  - Tracheobronchitis [None]
  - Altered state of consciousness [None]
  - Confusional state [None]
  - Sputum increased [None]

NARRATIVE: CASE EVENT DATE: 20201109
